FAERS Safety Report 8486581 (Version 5)
Quarter: 2013Q3

REPORT INFORMATION
  Report Type: Spontaneous
  Country: GB (occurrence: GB)
  Receive Date: 20120402
  Receipt Date: 20130906
  Transmission Date: 20140515
  Serious: Yes (Life-Threatening, Hospitalization, Other)
  Sender: FDA-Public Use
  Company Number: PHFR2012GB001973

PATIENT
  Age: 46 Year
  Sex: Male
  Weight: 88.5 kg

DRUGS (9)
  1. CLOZARIL [Suspect]
     Indication: SCHIZOPHRENIA
     Dosage: 600 MG, DAILY
     Route: 048
     Dates: start: 20010701, end: 20120502
  2. CLOZARIL [Suspect]
     Indication: PSYCHOTIC DISORDER
  3. RAMIPRIL [Concomitant]
     Indication: HYPERTENSION
     Dosage: 1.25 MG, DAILY
     Route: 048
  4. ASPIRIN [Concomitant]
     Indication: HYPERTENSION
     Dosage: 75 MG, DAILY
     Route: 048
  5. LANSOPRAZOLE [Concomitant]
     Indication: GASTRITIS
     Dosage: 30 MG, DAILY
     Route: 048
  6. OLANZAPINE [Concomitant]
     Indication: PSYCHOTIC DISORDER
     Dosage: 10 MG, DAILY
     Route: 048
  7. CLENIL [Concomitant]
     Indication: ASTHMA
     Dosage: 200 UG, DAILY
  8. VENTOLIN [Concomitant]
     Indication: ASTHMA
     Dosage: 100 UG, DAILY
  9. MOVICOL [Concomitant]
     Indication: CONSTIPATION
     Dosage: 50 MG, DAILY
     Route: 048

REACTIONS (9)
  - Obstruction gastric [Recovered/Resolved]
  - Cardiac arrest [Recovered/Resolved]
  - Pulmonary embolism [Recovered/Resolved]
  - Oesophagitis [Unknown]
  - Liver disorder [Unknown]
  - Hypophagia [Unknown]
  - Lower respiratory tract infection [Unknown]
  - Vomiting [Unknown]
  - Pancreatic pseudocyst [Unknown]
